FAERS Safety Report 13556649 (Version 1)
Quarter: 2017Q2

REPORT INFORMATION
  Report Type: Spontaneous
  Country: US (occurrence: US)
  Receive Date: 20170517
  Receipt Date: 20170517
  Transmission Date: 20170830
  Serious: No
  Sender: FDA-Public Use
  Company Number: US-SA-2017SA054072

PATIENT
  Age: 51 Year
  Sex: Female

DRUGS (6)
  1. TOUJEO [Suspect]
     Active Substance: INSULIN GLARGINE
     Indication: TYPE 2 DIABETES MELLITUS
     Dosage: DOSE:28 UNIT(S)
     Route: 065
     Dates: start: 201612, end: 20170318
  2. LANTUS SOLOSTAR [Concomitant]
     Active Substance: INSULIN GLARGINE
  3. SOLOSTAR [Concomitant]
     Active Substance: DEVICE
  4. LANTUS SOLOSTAR [Concomitant]
     Active Substance: INSULIN GLARGINE
     Dates: start: 20170318
  5. SOLOSTAR [Concomitant]
     Active Substance: DEVICE
     Dates: start: 201612, end: 20170318
  6. SOLOSTAR [Concomitant]
     Active Substance: DEVICE
     Dates: start: 20170318

REACTIONS (2)
  - Heart rate increased [Unknown]
  - Chest pain [Unknown]

NARRATIVE: CASE EVENT DATE: 20170116
